FAERS Safety Report 11893567 (Version 3)
Quarter: 2017Q1

REPORT INFORMATION
  Report Type: Report from Study
  Country: US (occurrence: US)
  Receive Date: 20160106
  Receipt Date: 20170208
  Transmission Date: 20170428
  Serious: Yes (Death, Hospitalization)
  Sender: FDA-Public Use
  Company Number: US-ACTELION-A-US2015-128872

PATIENT
  Age: 75 Year
  Sex: Female

DRUGS (10)
  1. VENTAVIS [Suspect]
     Active Substance: ILOPROST
     Indication: PULMONARY ARTERIAL HYPERTENSION
     Dosage: 5 MCG, 6 TIMES DAILY
     Route: 055
     Dates: start: 20130520
  2. ALLOPURINOL. [Concomitant]
     Active Substance: ALLOPURINOL
  3. REVATIO [Concomitant]
     Active Substance: SILDENAFIL CITRATE
  4. METOLAZONE. [Concomitant]
     Active Substance: METOLAZONE
  5. METOPROLOL SUCCINATE. [Concomitant]
     Active Substance: METOPROLOL SUCCINATE
  6. LETAIRIS [Concomitant]
     Active Substance: AMBRISENTAN
  7. PANTOPRAZOLE [Concomitant]
     Active Substance: PANTOPRAZOLE SODIUM
  8. FUROSEMIDE. [Concomitant]
     Active Substance: FUROSEMIDE
  9. VENTAVIS [Suspect]
     Active Substance: ILOPROST
     Dosage: 5 MCG, 4-5X/DAY
     Route: 055
     Dates: start: 20160531
  10. KLOR-CON [Concomitant]
     Active Substance: POTASSIUM CHLORIDE

REACTIONS (9)
  - Pulmonary oedema [Unknown]
  - Peripheral swelling [Recovering/Resolving]
  - Influenza [Unknown]
  - Nasopharyngitis [Unknown]
  - Pericardial effusion [Unknown]
  - Pneumonia [Unknown]
  - Cardiac failure congestive [Unknown]
  - Pain [Unknown]
  - Death [Fatal]

NARRATIVE: CASE EVENT DATE: 20170104
